FAERS Safety Report 26061225 (Version 1)
Quarter: 2025Q4

REPORT INFORMATION
  Report Type: Spontaneous
  Country: US (occurrence: US)
  Receive Date: 20251118
  Receipt Date: 20251118
  Transmission Date: 20260117
  Serious: Yes (Hospitalization)
  Sender: TRAVERE THERAPEUTICS
  Company Number: US-TRAVERE-2025TVT02228

PATIENT
  Age: 72 Year
  Sex: Male

DRUGS (18)
  1. FILSPARI [Suspect]
     Active Substance: SPARSENTAN
     Indication: IgA nephropathy
     Route: 048
  2. TARPEYO [Suspect]
     Active Substance: BUDESONIDE
     Indication: Product used for unknown indication
  3. LOSARTAN [Suspect]
     Active Substance: LOSARTAN
     Indication: Product used for unknown indication
  4. LISINOPRIL [Suspect]
     Active Substance: LISINOPRIL
     Indication: Product used for unknown indication
  5. ZOCOR [Concomitant]
     Active Substance: SIMVASTATIN
  6. NIACIN [Concomitant]
     Active Substance: NIACIN
  7. ACYCLOVIR [Concomitant]
     Active Substance: ACYCLOVIR
  8. MELATONIN [Concomitant]
     Active Substance: MELATONIN
  9. HYDRALAZINE [Concomitant]
     Active Substance: HYDRALAZINE HYDROCHLORIDE
  10. ALDACTONE [Concomitant]
     Active Substance: SPIRONOLACTONE
  11. BISOPROLOL [Concomitant]
     Active Substance: BISOPROLOL
  12. LASIX [Concomitant]
     Active Substance: FUROSEMIDE
  13. LATANOPROST [Concomitant]
     Active Substance: LATANOPROST
  14. BACTRIM [Concomitant]
     Active Substance: SULFAMETHOXAZOLE\TRIMETHOPRIM
  15. CHOLECALCIFEROL [Concomitant]
     Active Substance: CHOLECALCIFEROL
  16. NORVASC [Concomitant]
     Active Substance: AMLODIPINE BESYLATE
  17. DECADRON [Concomitant]
     Active Substance: DEXAMETHASONE
  18. SPS [Concomitant]
     Active Substance: SODIUM POLYSTYRENE SULFONATE

REACTIONS (3)
  - Blood pressure increased [Unknown]
  - Oedema [Unknown]
  - Contraindicated product administered [Unknown]

NARRATIVE: CASE EVENT DATE: 20250623
